FAERS Safety Report 19366882 (Version 2)
Quarter: 2022Q3

REPORT INFORMATION
  Report Type: Other
  Country: CA (occurrence: CA)
  Receive Date: 20210603
  Receipt Date: 20220731
  Transmission Date: 20221027
  Serious: Yes (Hospitalization, Other)
  Sender: FDA-Public Use
  Company Number: CA-APOTEX-2021AP013067

PATIENT
  Age: 83 Year
  Sex: Male

DRUGS (5)
  1. ALBUTEROL [Suspect]
     Active Substance: ALBUTEROL
     Indication: Product used for unknown indication
     Dosage: UNK
     Route: 065
  2. ASPIRIN [Suspect]
     Active Substance: ASPIRIN
     Indication: Product used for unknown indication
     Dosage: UNK
     Route: 065
  3. MEPOLIZUMAB [Suspect]
     Active Substance: MEPOLIZUMAB
     Indication: Asthma
     Dosage: 100 MILLIGRAM
     Route: 042
  4. FLUTICASONE FUROATE\VILANTEROL TRIFENATATE [Suspect]
     Active Substance: FLUTICASONE FUROATE\VILANTEROL TRIFENATATE
     Indication: Product used for unknown indication
     Dosage: UNK
     Route: 065
  5. MOMETASONE FUROATE [Suspect]
     Active Substance: MOMETASONE FUROATE
     Indication: Product used for unknown indication
     Dosage: UNK
     Route: 065

REACTIONS (23)
  - Primary familial brain calcification [Unknown]
  - Suture removal [Unknown]
  - Craniotomy [Unknown]
  - Intracranial mass [Unknown]
  - Cerebral mass effect [Unknown]
  - Soft tissue swelling [Unknown]
  - Cerebral disorder [Unknown]
  - Pneumocephalus [Unknown]
  - Subdural haematoma [Unknown]
  - Cerebral thrombosis [Unknown]
  - Cerebrovascular accident [Unknown]
  - Lacunar infarction [Unknown]
  - Sinus disorder [Unknown]
  - Dementia Alzheimer^s type [Unknown]
  - Fall [Unknown]
  - Mucosal hypertrophy [Unknown]
  - Chest pain [Unknown]
  - Drug hypersensitivity [Unknown]
  - Gait disturbance [Unknown]
  - Muscular weakness [Unknown]
  - Speech disorder [Unknown]
  - Mental disorder [Unknown]
  - Paranoia [Unknown]
